FAERS Safety Report 9094450 (Version 2)
Quarter: 2013Q1

REPORT INFORMATION
  Report Type: Spontaneous
  Country: US (occurrence: US)
  Receive Date: 20130201
  Receipt Date: 20130304
  Transmission Date: 20140127
  Serious: Yes (Other)
  Sender: FDA-Public Use
  Company Number: US-ELI_LILLY_AND_COMPANY-US201301007587

PATIENT
  Sex: Female
  Weight: 66.67 kg

DRUGS (7)
  1. FORTEO [Suspect]
     Indication: OSTEOPOROSIS
     Dosage: 20 UG, QD
     Dates: start: 20120521, end: 20121220
  2. NEXIUM [Concomitant]
  3. CRESTOR [Concomitant]
  4. PROPYLTHIOURACIL [Concomitant]
  5. FLUOXETINE [Concomitant]
  6. DICYCLOMINE [Concomitant]
  7. VITAMIN D3 [Concomitant]

REACTIONS (1)
  - Oropharyngeal cancer [Not Recovered/Not Resolved]
